FAERS Safety Report 17375917 (Version 2)
Quarter: 2020Q1

REPORT INFORMATION
  Report Type: Spontaneous
  Country: DK (occurrence: DK)
  Receive Date: 20200206
  Receipt Date: 20200213
  Transmission Date: 20200409
  Serious: Yes (Life-Threatening, Hospitalization)
  Sender: FDA-Public Use
  Company Number: DK-TEVA-2020-DK-1181951

PATIENT
  Age: 85 Year
  Sex: Female

DRUGS (9)
  1. SIMVASTATIN ^TEVA^ [Suspect]
     Active Substance: SIMVASTATIN
     Indication: HYPERCHOLESTEROLAEMIA
     Dosage: 20 MG
     Route: 048
     Dates: start: 2012, end: 20200119
  2. IMDUR [Concomitant]
     Active Substance: ISOSORBIDE MONONITRATE
     Indication: MYOCARDIAL ISCHAEMIA
     Dosage: 30 MG
     Route: 048
     Dates: start: 20120912
  3. IVABRADIN ^MEDICAL VALLEY^ [Concomitant]
     Indication: ANGINA PECTORIS
     Dosage: 10 MG
     Route: 048
     Dates: start: 20140107
  4. PREDNISOLON ^ACTAVIS^ [Concomitant]
     Active Substance: PREDNISOLONE
     Indication: AUTOIMMUNE HAEMOLYTIC ANAEMIA
     Dosage: 5 MG
     Route: 048
     Dates: start: 20190412
  5. DANOL ^SANOFI-AVENTIS^ [Interacting]
     Active Substance: DANAZOL
     Indication: AUTOIMMUNE HAEMOLYTIC ANAEMIA
     Dosage: 600 MG
     Route: 048
     Dates: start: 20191101
  6. ACETYLSALICYLSYRE ^TEVA^ [Concomitant]
     Active Substance: ASPIRIN
     Indication: MYOCARDIAL ISCHAEMIA
     Dosage: 75 MG
     Route: 048
     Dates: start: 20140424
  7. PIVMECILLINAM [Concomitant]
     Active Substance: AMDINOCILLIN PIVOXIL
     Indication: CYSTITIS
     Dosage: 1200 MG
     Route: 048
     Dates: start: 20200116
  8. TRANDOLAPRIL ^AUROBINDO^ [Concomitant]
     Indication: HYPERTENSION
     Dosage: 4 MG
     Route: 048
     Dates: start: 20140912
  9. FUROSEMID ^ACCORD^ [Concomitant]
     Indication: HYPERTENSION
     Dosage: 30 MG
     Route: 048
     Dates: start: 20170404

REACTIONS (3)
  - Drug interaction [Unknown]
  - Hepatic function abnormal [Not Recovered/Not Resolved]
  - Acute kidney injury [Not Recovered/Not Resolved]

NARRATIVE: CASE EVENT DATE: 202001
